FAERS Safety Report 4662286-8 (Version None)
Quarter: 2005Q2

REPORT INFORMATION
  Report Type: 
  Country: None (occurrence: None)
  Receive Date: 20050516
  Receipt Date: 20050504
  Transmission Date: 20051028
  Serious: Yes (Hospitalization)
  Sender: FDA-Public Use
  Company Number: PHBS2005ES06407

PATIENT
  Age: 18 Year
  Sex: Female

DRUGS (1)
  1. SANDIMMUNE [Suspect]
     Indication: TRANSPLANT
     Dosage: 200 MG, ONCE/SINGLE
     Route: 042
     Dates: start: 20050504, end: 20050504

REACTIONS (4)
  - ANAPHYLACTIC REACTION [None]
  - BLOOD PRESSURE INCREASED [None]
  - MEDICATION ERROR [None]
  - RASH [None]
